FAERS Safety Report 16822824 (Version 1)
Quarter: 2019Q3

REPORT INFORMATION
  Report Type: Report from Study
  Country: US (occurrence: US)
  Receive Date: 20190918
  Receipt Date: 20190918
  Transmission Date: 20191005
  Serious: Yes (Death, Hospitalization, Other)
  Sender: FDA-Public Use
  Company Number: US-PFIZER INC-2019370332

PATIENT
  Age: 83 Year
  Sex: Female

DRUGS (1)
  1. SUTENT [Suspect]
     Active Substance: SUNITINIB MALATE
     Indication: RENAL CELL CARCINOMA
     Dosage: 50 MG, CYCLIC (DAILY FOR 28 DAYS OF 42 DAY CYCLE)
     Route: 048
     Dates: start: 20190726, end: 20190823

REACTIONS (13)
  - Blood urine present [Recovered/Resolved]
  - Yellow skin [Unknown]
  - Back pain [Unknown]
  - Asthenia [Unknown]
  - Faeces discoloured [Unknown]
  - Rhinorrhoea [Unknown]
  - Decreased appetite [Unknown]
  - Thrombocytopenia [Unknown]
  - Death [Fatal]
  - Fatigue [Unknown]
  - Diarrhoea [Unknown]
  - Dyspepsia [Unknown]
  - Feeling cold [Unknown]

NARRATIVE: CASE EVENT DATE: 20190827
